FAERS Safety Report 4449617-9 (Version None)
Quarter: 2004Q3

REPORT INFORMATION
  Report Type: 
  Country: None (occurrence: None)
  Receive Date: 20040913
  Receipt Date: 20040901
  Transmission Date: 20050211
  Serious: Yes (Hospitalization)
  Sender: FDA-Public Use
  Company Number: 208815

PATIENT
  Sex: Male

DRUGS (2)
  1. CATHFLO ACTIVASE (ALTEPLSE) PWDR + SOLVENT, INFUSION SOLN, 2 MG [Suspect]
     Dosage: 2 MG, INTRACATHETER
  2. NAPCILLIN (NAPCILLIN SODIUM) [Concomitant]

REACTIONS (2)
  - CATHETER RELATED COMPLICATION [None]
  - PULMONARY EMBOLISM [None]
